FAERS Safety Report 24754186 (Version 1)
Quarter: 2024Q4

REPORT INFORMATION
  Report Type: Spontaneous
  Country: CA (occurrence: CA)
  Receive Date: 20241219
  Receipt Date: 20241219
  Transmission Date: 20250114
  Serious: Yes (Hospitalization, Disabling, Other)
  Sender: OTSUKA
  Company Number: CA-OTSUKA-2024_033966

PATIENT
  Age: 49 Year
  Sex: Female

DRUGS (24)
  1. ARIPIPRAZOLE [Suspect]
     Active Substance: ARIPIPRAZOLE
     Indication: Williams syndrome
     Dosage: UNK
     Route: 065
  2. ARIPIPRAZOLE [Suspect]
     Active Substance: ARIPIPRAZOLE
     Indication: Schizoaffective disorder
  3. CLOZAPINE [Suspect]
     Active Substance: CLOZAPINE
     Indication: Williams syndrome
     Dosage: 400 MG, QD
     Route: 065
  4. CLOZAPINE [Suspect]
     Active Substance: CLOZAPINE
     Indication: Schizoaffective disorder
  5. CLOZAPINE [Suspect]
     Active Substance: CLOZAPINE
     Indication: Antipsychotic therapy
  6. LORAZEPAM [Suspect]
     Active Substance: LORAZEPAM
     Indication: Williams syndrome
     Dosage: 1 MG, BID
     Route: 065
  7. LORAZEPAM [Suspect]
     Active Substance: LORAZEPAM
     Indication: Schizoaffective disorder
     Dosage: UNK
     Route: 065
  8. LORAZEPAM [Suspect]
     Active Substance: LORAZEPAM
     Indication: Major depression
  9. LORAZEPAM [Suspect]
     Active Substance: LORAZEPAM
     Indication: Generalised anxiety disorder
  10. OLANZAPINE [Suspect]
     Active Substance: OLANZAPINE
     Indication: Williams syndrome
     Dosage: 20 MG, QD
     Route: 065
  11. OLANZAPINE [Suspect]
     Active Substance: OLANZAPINE
     Indication: Schizoaffective disorder
  12. OLANZAPINE [Suspect]
     Active Substance: OLANZAPINE
     Indication: Antipsychotic therapy
  13. PALIPERIDONE [Suspect]
     Active Substance: PALIPERIDONE
     Indication: Williams syndrome
     Dosage: UNK
     Route: 065
  14. PALIPERIDONE [Suspect]
     Active Substance: PALIPERIDONE
     Indication: Schizoaffective disorder
  15. QUETIAPINE [Suspect]
     Active Substance: QUETIAPINE
     Indication: Williams syndrome
     Dosage: UNK
     Route: 065
  16. QUETIAPINE [Suspect]
     Active Substance: QUETIAPINE
     Indication: Schizoaffective disorder
  17. SERTRALINE [Suspect]
     Active Substance: SERTRALINE HYDROCHLORIDE
     Indication: Williams syndrome
     Dosage: 200 MG, QD
     Route: 065
  18. SERTRALINE [Suspect]
     Active Substance: SERTRALINE HYDROCHLORIDE
     Indication: Schizoaffective disorder
     Dosage: 175 MG, QD
     Route: 065
  19. SERTRALINE [Suspect]
     Active Substance: SERTRALINE HYDROCHLORIDE
     Indication: Major depression
  20. SERTRALINE [Suspect]
     Active Substance: SERTRALINE HYDROCHLORIDE
     Indication: Generalised anxiety disorder
  21. QUETIAPINE FUMARATE [Suspect]
     Active Substance: QUETIAPINE FUMARATE
     Indication: Schizoaffective disorder
     Dosage: 400 MG, QD
     Route: 065
  22. EMPAGLIFLOZIN [Concomitant]
     Active Substance: EMPAGLIFLOZIN
     Indication: Type 2 diabetes mellitus
     Dosage: UNK
     Route: 065
  23. LINAGLIPTIN [Concomitant]
     Active Substance: LINAGLIPTIN
     Indication: Type 2 diabetes mellitus
     Dosage: UNK
     Route: 065
  24. METFORMIN [Concomitant]
     Active Substance: METFORMIN HYDROCHLORIDE
     Indication: Type 2 diabetes mellitus
     Dosage: UNK
     Route: 065

REACTIONS (7)
  - Movement disorder [Recovered/Resolved]
  - Parkinsonism [Recovering/Resolving]
  - Dyskinesia [Recovering/Resolving]
  - Tardive dyskinesia [Recovering/Resolving]
  - Dystonia [Recovering/Resolving]
  - Drug ineffective [Recovered/Resolved]
  - Product use in unapproved indication [Unknown]
